FAERS Safety Report 11594455 (Version 2)
Quarter: 2017Q2

REPORT INFORMATION
  Report Type: Other
  Country: US (occurrence: US)
  Receive Date: 20151005
  Receipt Date: 20170531
  Transmission Date: 20170829
  Serious: No
  Sender: FDA-Public Use
  Company Number: US-APOTEX-2015AP011318

PATIENT
  Sex: Female

DRUGS (1)
  1. DULOXETINE HYDROCHLORIDE DELAYED-RELEASE CAPSULES [Suspect]
     Active Substance: DULOXETINE HYDROCHLORIDE
     Indication: NEURALGIA
     Route: 065

REACTIONS (9)
  - Depression [Not Recovered/Not Resolved]
  - Aggression [Not Recovered/Not Resolved]
  - Anxiety [Not Recovered/Not Resolved]
  - Drug ineffective [Not Recovered/Not Resolved]
  - Anger [Not Recovered/Not Resolved]
  - Emotional distress [Not Recovered/Not Resolved]
  - Hostility [Not Recovered/Not Resolved]
  - Agitation [Not Recovered/Not Resolved]
  - Insomnia [Not Recovered/Not Resolved]
